FAERS Safety Report 9599788 (Version 2)
Quarter: 2013Q4

REPORT INFORMATION
  Report Type: Spontaneous
  Country: US (occurrence: US)
  Receive Date: 20131004
  Receipt Date: 20131004
  Transmission Date: 20140711
  Serious: No
  Sender: FDA-Public Use
  Company Number: US-AMGEN-USASP2013027161

PATIENT
  Age: 61 Year
  Sex: Male
  Weight: 95.24 kg

DRUGS (6)
  1. ENBREL [Suspect]
     Indication: PSORIASIS
     Dosage: 50 MG, 2 TIMES/WK
     Route: 030
     Dates: start: 20130413, end: 20130417
  2. ACYCLOVIR                          /00587301/ [Concomitant]
     Indication: HEPATITIS G
     Dosage: UNK
     Route: 048
  3. ATENOLOL [Concomitant]
     Dosage: UNK
     Route: 048
  4. CLONIDINE [Concomitant]
     Dosage: UNK
     Route: 048
  5. LOVASTATIN [Concomitant]
     Dosage: UNK
     Route: 048
  6. BENAZEPRIL [Concomitant]
     Dosage: UNK
     Route: 048

REACTIONS (9)
  - Arthralgia [Not Recovered/Not Resolved]
  - Nerve compression [Not Recovered/Not Resolved]
  - Dyspnoea [Recovering/Resolving]
  - Rhinorrhoea [Recovering/Resolving]
  - Headache [Recovering/Resolving]
  - Fatigue [Recovering/Resolving]
  - Nausea [Recovering/Resolving]
  - Injection site pain [Not Recovered/Not Resolved]
  - Injection site haemorrhage [Not Recovered/Not Resolved]
